FAERS Safety Report 9767298 (Version 1)
Quarter: 2013Q4

REPORT INFORMATION
  Report Type: Spontaneous
  Country: US (occurrence: None)
  Receive Date: 20131216
  Receipt Date: 20131216
  Transmission Date: 20140711
  Serious: Yes (Life-Threatening, Hospitalization)
  Sender: FDA-Public Use
  Company Number: None

PATIENT
  Age: 59 Year
  Sex: Male
  Weight: 82.5 kg

DRUGS (1)
  1. KETOROLAC TROMETHAMINE [Suspect]
     Indication: PAIN
     Route: 030
     Dates: start: 20130805, end: 20130805

REACTIONS (7)
  - Cold sweat [None]
  - Throat tightness [None]
  - Swollen tongue [None]
  - Anaphylactic reaction [None]
  - Angioedema [None]
  - Bradycardia [None]
  - Hyperhidrosis [None]
